FAERS Safety Report 6334374-1 (Version None)
Quarter: 2009Q3

REPORT INFORMATION
  Report Type: 
  Country: None (occurrence: None)
  Receive Date: 20090831
  Receipt Date: 20090821
  Transmission Date: 20100115
  Serious: Yes (Hospitalization)
  Sender: FDA-Public Use
  Company Number: JP-BIOGENIDEC-2009BI007621

PATIENT
  Age: 36 Year
  Sex: Male

DRUGS (11)
  1. AVONEX [Suspect]
     Indication: MULTIPLE SCLEROSIS
     Route: 030
     Dates: start: 20080725
  2. KETAS [Concomitant]
     Dates: start: 20080725
  3. METHYCOBAL [Concomitant]
     Dates: start: 20090725
  4. MUCODYNE [Concomitant]
     Dates: start: 20090725
  5. LIPITOR [Concomitant]
     Dates: start: 20080725
  6. MAGNESIUM OXIDE [Concomitant]
     Dates: start: 20080725
  7. PURSENNID [Concomitant]
     Dates: start: 20080725, end: 20080821
  8. BRUFEN [Concomitant]
     Dates: start: 20080725
  9. AZANIN [Concomitant]
     Dates: start: 20080201
  10. ADETPHOS [Concomitant]
     Dates: start: 20080725
  11. MUCOSTA [Concomitant]
     Dates: start: 20080725

REACTIONS (7)
  - HEPATIC FUNCTION ABNORMAL [None]
  - HYPERCREATININAEMIA [None]
  - INFLUENZA LIKE ILLNESS [None]
  - MENINGITIS BACTERIAL [None]
  - MULTIPLE SCLEROSIS RELAPSE [None]
  - NEUTROPHIL COUNT INCREASED [None]
  - OPTIC NEURITIS [None]
